FAERS Safety Report 26156473 (Version 1)
Quarter: 2025Q4

REPORT INFORMATION
  Report Type: Spontaneous
  Country: US (occurrence: US)
  Receive Date: 20251215
  Receipt Date: 20251215
  Transmission Date: 20260117
  Serious: No
  Sender: ALCON
  Company Number: US-ALCON LABORATORIES-ALC2025US006415

PATIENT
  Age: 73 Year
  Sex: Female

DRUGS (2)
  1. ACOLTREMON [Suspect]
     Active Substance: ACOLTREMON
     Indication: Dry eye
     Dosage: 1 DROP INTO AFFECTED EYE(S) 2 TIMES A DAY.
     Route: 047
     Dates: start: 20251106
  2. ACOLTREMON [Suspect]
     Active Substance: ACOLTREMON
     Indication: Dry eye

REACTIONS (3)
  - Eye irritation [Unknown]
  - Eye pain [Unknown]
  - Periorbital swelling [Unknown]
